FAERS Safety Report 6528247-9 (Version None)
Quarter: 2010Q1

REPORT INFORMATION
  Report Type: 
  Country: None (occurrence: None)
  Receive Date: 20100106
  Receipt Date: 20091228
  Transmission Date: 20100710
  Serious: Yes (Hospitalization, Other)
  Sender: FDA-Public Use
  Company Number: US-ABBOTT-09P-163-0616952-00

PATIENT
  Sex: Female
  Weight: 59.02 kg

DRUGS (8)
  1. HUMIRA [Suspect]
     Indication: PSORIATIC ARTHROPATHY
     Dates: start: 20060101
  2. METHOTREXATE [Concomitant]
     Indication: PSORIATIC ARTHROPATHY
  3. FOLIC ACID [Concomitant]
     Indication: PSORIATIC ARTHROPATHY
  4. SIMVASTATIN [Concomitant]
     Indication: BLOOD CHOLESTEROL INCREASED
  5. PROTONIX [Concomitant]
     Indication: PAIN
  6. WELLBUTRIN [Concomitant]
     Indication: DEPRESSION
  7. NAPROSYN [Concomitant]
     Indication: PAIN
  8. NEURONTIN [Concomitant]
     Indication: FIBROMYALGIA

REACTIONS (11)
  - BURSITIS [None]
  - CELLULITIS [None]
  - CHONDROPATHY [None]
  - DIABETES MELLITUS [None]
  - ERYTHEMA [None]
  - ILL-DEFINED DISORDER [None]
  - INSOMNIA [None]
  - LIGAMENT DISORDER [None]
  - LIMB DEFORMITY [None]
  - MEMORY IMPAIRMENT [None]
  - THERMAL BURN [None]
